FAERS Safety Report 21099601 (Version 1)
Quarter: 2022Q3

REPORT INFORMATION
  Report Type: Spontaneous
  Country: JP (occurrence: JP)
  Receive Date: 20220719
  Receipt Date: 20220719
  Transmission Date: 20221027
  Serious: Yes (Hospitalization, Other)
  Sender: FDA-Public Use
  Company Number: JP-NOVARTISPH-NVSJ2016JP002362

PATIENT
  Sex: Male

DRUGS (72)
  1. VILDAGLIPTIN [Suspect]
     Active Substance: VILDAGLIPTIN
     Indication: Type 2 diabetes mellitus
     Dosage: UNK
     Route: 048
  2. VILDAGLIPTIN [Suspect]
     Active Substance: VILDAGLIPTIN
     Dosage: 50 MG, BID
     Route: 048
     Dates: start: 20160308
  3. DIOVAN [Suspect]
     Active Substance: VALSARTAN
     Indication: Hypertension
     Dosage: UNK
     Route: 048
     Dates: end: 20151005
  4. DIOVAN [Suspect]
     Active Substance: VALSARTAN
     Dosage: UNK
     Route: 048
     Dates: start: 20151017
  5. DIOVAN [Suspect]
     Active Substance: VALSARTAN
     Dosage: 80 MG, BID
     Route: 048
  6. DIOVAN [Suspect]
     Active Substance: VALSARTAN
     Dosage: 80 MG MORNING, 40 MG EVENING, BID
     Route: 048
     Dates: start: 20200601
  7. DIOVAN [Suspect]
     Active Substance: VALSARTAN
     Dosage: 40 MG, QD
     Route: 048
  8. DIOVAN [Suspect]
     Active Substance: VALSARTAN
     Dosage: 80 MG
     Route: 048
  9. DIOVAN [Suspect]
     Active Substance: VALSARTAN
     Dosage: 40 MG, QD
     Route: 048
  10. METGLUCO [Suspect]
     Active Substance: METFORMIN HYDROCHLORIDE
     Indication: Type 2 diabetes mellitus
     Dosage: 500 MG, BID
     Route: 048
     Dates: end: 20151005
  11. METGLUCO [Suspect]
     Active Substance: METFORMIN HYDROCHLORIDE
     Indication: Hypertension
     Dosage: 100 MG, BID
     Route: 048
     Dates: start: 20160201
  12. METGLUCO [Suspect]
     Active Substance: METFORMIN HYDROCHLORIDE
     Dosage: 500 MG, BID
     Route: 048
  13. METGLUCO [Suspect]
     Active Substance: METFORMIN HYDROCHLORIDE
     Dosage: 500 MG
     Route: 048
  14. METGLUCO [Suspect]
     Active Substance: METFORMIN HYDROCHLORIDE
     Dosage: 500 MG, BID
     Route: 048
  15. METGLUCO [Suspect]
     Active Substance: METFORMIN HYDROCHLORIDE
     Dosage: 1500 MG
     Route: 048
  16. METGLUCO [Suspect]
     Active Substance: METFORMIN HYDROCHLORIDE
     Dosage: 1000 MG
     Route: 048
  17. AMLODIPINE BESYLATE [Suspect]
     Active Substance: AMLODIPINE BESYLATE
     Indication: Hypertension
     Dosage: UNK
     Route: 048
     Dates: end: 20151005
  18. AMLODIPINE BESYLATE [Suspect]
     Active Substance: AMLODIPINE BESYLATE
     Indication: Angina pectoris
     Dosage: UNK
     Route: 048
     Dates: start: 20151017
  19. AMLODIPINE BESYLATE [Suspect]
     Active Substance: AMLODIPINE BESYLATE
     Dosage: 10 MG
     Route: 048
     Dates: start: 20151017
  20. AMLODIPINE BESYLATE [Suspect]
     Active Substance: AMLODIPINE BESYLATE
     Dosage: 7.5 MG
     Route: 048
     Dates: start: 20200601
  21. AMLODIPINE BESYLATE [Suspect]
     Active Substance: AMLODIPINE BESYLATE
     Dosage: 2.5 MG
     Route: 048
     Dates: start: 202006
  22. AMLODIPINE BESYLATE [Suspect]
     Active Substance: AMLODIPINE BESYLATE
     Dosage: 10 MG
     Route: 048
  23. AMLODIPINE BESYLATE [Suspect]
     Active Substance: AMLODIPINE BESYLATE
     Dosage: 10 MG, BID
     Route: 048
     Dates: start: 20201108
  24. AMLODIPINE BESYLATE [Suspect]
     Active Substance: AMLODIPINE BESYLATE
     Dosage: 10 MG, BID
     Route: 048
     Dates: start: 20201109
  25. AMLODIPINE BESYLATE [Suspect]
     Active Substance: AMLODIPINE BESYLATE
     Dosage: 2.5 MG
     Route: 048
  26. AMLODIPINE BESYLATE [Suspect]
     Active Substance: AMLODIPINE BESYLATE
     Dosage: 5 MG
     Route: 048
     Dates: start: 20210224
  27. AMLODIPINE BESYLATE [Suspect]
     Active Substance: AMLODIPINE BESYLATE
     Dosage: 7.5 MG
     Route: 048
     Dates: start: 20210405
  28. AMLODIPINE BESYLATE [Suspect]
     Active Substance: AMLODIPINE BESYLATE
     Dosage: 10 MG
     Route: 048
     Dates: start: 20210406
  29. AMLODIPINE BESYLATE [Suspect]
     Active Substance: AMLODIPINE BESYLATE
     Dosage: 5 MG, QD
     Route: 048
  30. AMLODIPINE BESYLATE [Suspect]
     Active Substance: AMLODIPINE BESYLATE
     Dosage: 7.5 MG
     Route: 048
     Dates: start: 20210405, end: 20210407
  31. AMLODIPINE BESYLATE [Suspect]
     Active Substance: AMLODIPINE BESYLATE
     Dosage: 10 MG
     Route: 048
  32. AMLODIPINE BESYLATE [Suspect]
     Active Substance: AMLODIPINE BESYLATE
     Dosage: 5 MG
     Route: 048
     Dates: start: 20210517, end: 20210519
  33. PEROSPIRONE HYDROCHLORIDE [Suspect]
     Active Substance: PEROSPIRONE HYDROCHLORIDE
     Indication: Anxiety
     Dosage: 4 MG, TID
     Route: 048
     Dates: start: 201911
  34. PEROSPIRONE HYDROCHLORIDE [Suspect]
     Active Substance: PEROSPIRONE HYDROCHLORIDE
     Indication: Irritability
     Dosage: 4 MG, QD
     Route: 048
     Dates: start: 201912
  35. PEROSPIRONE HYDROCHLORIDE [Suspect]
     Active Substance: PEROSPIRONE HYDROCHLORIDE
     Indication: Persistent depressive disorder
     Dosage: 4 MG, BID
     Route: 048
  36. PEROSPIRONE HYDROCHLORIDE [Suspect]
     Active Substance: PEROSPIRONE HYDROCHLORIDE
     Indication: Chest discomfort
     Dosage: 8 MG
     Route: 048
  37. PEROSPIRONE HYDROCHLORIDE [Suspect]
     Active Substance: PEROSPIRONE HYDROCHLORIDE
     Indication: Abulia
     Dosage: 4 MG
     Route: 048
     Dates: start: 20201002
  38. PEROSPIRONE HYDROCHLORIDE [Suspect]
     Active Substance: PEROSPIRONE HYDROCHLORIDE
     Indication: Stupor
     Dosage: 4 MG, BID
     Route: 048
  39. PEROSPIRONE HYDROCHLORIDE [Suspect]
     Active Substance: PEROSPIRONE HYDROCHLORIDE
     Dosage: UNK UNK, QID
     Route: 048
  40. PEROSPIRONE HYDROCHLORIDE [Suspect]
     Active Substance: PEROSPIRONE HYDROCHLORIDE
     Dosage: 4 MG, TID
     Route: 048
  41. PEROSPIRONE HYDROCHLORIDE [Suspect]
     Active Substance: PEROSPIRONE HYDROCHLORIDE
     Dosage: 4 MG, BID
     Route: 048
  42. RISPERIDONE [Suspect]
     Active Substance: RISPERIDONE
     Indication: Persistent depressive disorder
     Dosage: 12 MG
     Route: 065
  43. RISPERIDONE [Suspect]
     Active Substance: RISPERIDONE
     Indication: Anxiety
     Dosage: 8 MG
     Route: 065
     Dates: start: 2017, end: 2018
  44. RISPERIDONE [Suspect]
     Active Substance: RISPERIDONE
     Indication: Abulia
     Dosage: UNK
     Route: 065
  45. RISPERIDONE [Suspect]
     Active Substance: RISPERIDONE
     Dosage: 1 MG, BID
     Route: 065
  46. RISPERIDONE [Suspect]
     Active Substance: RISPERIDONE
     Dosage: 1 MG, BID
     Route: 065
  47. CYMBALTA [Suspect]
     Active Substance: DULOXETINE HYDROCHLORIDE
     Indication: Anxiety
     Dosage: 60 MG
     Route: 065
  48. CYMBALTA [Suspect]
     Active Substance: DULOXETINE HYDROCHLORIDE
     Dosage: UNK
     Route: 065
  49. ETHYL LOFLAZEPATE [Suspect]
     Active Substance: ETHYL LOFLAZEPATE
     Indication: Stupor
     Dosage: UNK
     Route: 048
  50. ETHYL LOFLAZEPATE [Suspect]
     Active Substance: ETHYL LOFLAZEPATE
     Indication: Somnolence
     Dosage: UNK
     Route: 048
     Dates: start: 202006
  51. ETHYL LOFLAZEPATE [Suspect]
     Active Substance: ETHYL LOFLAZEPATE
     Indication: Listless
     Dosage: 2 MG
     Route: 048
  52. ETHYL LOFLAZEPATE [Suspect]
     Active Substance: ETHYL LOFLAZEPATE
     Dosage: 2 MG
     Route: 048
     Dates: start: 20201224
  53. ETHYL LOFLAZEPATE [Suspect]
     Active Substance: ETHYL LOFLAZEPATE
     Dosage: 1 MG, BID
     Route: 048
     Dates: start: 20201224
  54. ETHYL LOFLAZEPATE [Suspect]
     Active Substance: ETHYL LOFLAZEPATE
     Dosage: UNK UNK, BID
     Route: 048
  55. LOXOPROFEN SODIUM [Suspect]
     Active Substance: LOXOPROFEN SODIUM
     Indication: Osteoarthritis
     Dosage: UNK, TID
     Route: 065
  56. LOXOPROFEN SODIUM [Suspect]
     Active Substance: LOXOPROFEN SODIUM
     Indication: Arthralgia
  57. CLONAZEPAM [Suspect]
     Active Substance: CLONAZEPAM
     Indication: Stupor
     Dosage: UNK
     Route: 048
  58. CLONAZEPAM [Suspect]
     Active Substance: CLONAZEPAM
     Dosage: UNK
     Route: 048
     Dates: start: 2019, end: 2019
  59. CLONAZEPAM [Suspect]
     Active Substance: CLONAZEPAM
     Dosage: 0.25 MG, QD
     Route: 048
     Dates: start: 20210211
  60. CLONAZEPAM [Suspect]
     Active Substance: CLONAZEPAM
     Dosage: 0.25 MG, BID
     Route: 048
     Dates: start: 20210217
  61. CLONAZEPAM [Suspect]
     Active Substance: CLONAZEPAM
     Dosage: 0.5 MG, QD
     Route: 048
  62. CLONAZEPAM [Suspect]
     Active Substance: CLONAZEPAM
     Dosage: 0.25 MG, BID
     Route: 048
     Dates: start: 20210421
  63. AZELASTINE HYDROCHLORIDE [Suspect]
     Active Substance: AZELASTINE HYDROCHLORIDE
     Indication: Rhinitis allergic
     Dosage: 8 MG
     Route: 065
  64. LORAZEPAM [Suspect]
     Active Substance: LORAZEPAM
     Indication: Product used for unknown indication
     Dosage: UNK
     Route: 065
  65. MIRABEGRON [Concomitant]
     Active Substance: MIRABEGRON
     Indication: Product used for unknown indication
     Dosage: UNK
     Route: 065
  66. LITHIUM [Concomitant]
     Active Substance: LITHIUM
     Indication: Anxiety
     Dosage: UNK
     Route: 065
  67. LITHIUM [Concomitant]
     Active Substance: LITHIUM
     Dosage: 400 MG,TOOK 400 MG IN THE EVENING
     Route: 065
  68. NEXIUM [Concomitant]
     Active Substance: ESOMEPRAZOLE MAGNESIUM
     Indication: Product used for unknown indication
     Dosage: UNK
     Route: 065
  69. BELSOMRA [Concomitant]
     Active Substance: SUVOREXANT
     Indication: Product used for unknown indication
     Dosage: UNK
     Route: 065
  70. AMLODIPINE BESYLATE\TELMISARTAN [Concomitant]
     Active Substance: AMLODIPINE BESYLATE\TELMISARTAN
     Indication: Hypertension
     Dosage: UNK
     Route: 065
  71. TELMISARTAN [Concomitant]
     Active Substance: TELMISARTAN
     Indication: Hypertension
     Dosage: 30-40 MG
     Route: 065
  72. LORAZEPAM [Concomitant]
     Active Substance: LORAZEPAM
     Indication: Product used for unknown indication
     Dosage: UNK
     Route: 065

REACTIONS (69)
  - Ulcer haemorrhage [Recovered/Resolved]
  - Mental status changes [Unknown]
  - Irritability [Unknown]
  - Anxiety [Unknown]
  - Parkinsonism [Unknown]
  - Dyskinesia [Recovering/Resolving]
  - Glycosylated haemoglobin increased [Recovering/Resolving]
  - Weight decreased [Unknown]
  - Blood pressure increased [Unknown]
  - Angina pectoris [Unknown]
  - Chest discomfort [Recovered/Resolved]
  - Cardiac discomfort [Recovered/Resolved]
  - Cardiac discomfort [Unknown]
  - Palpitations [Unknown]
  - Drug dependence [Unknown]
  - Depressed level of consciousness [Unknown]
  - Anaemia [Unknown]
  - Dizziness postural [Recovered/Resolved]
  - Orthostatic hypotension [Recovered/Resolved]
  - Dizziness postural [Unknown]
  - Orthostatic hypotension [Recovering/Resolving]
  - Dizziness [Unknown]
  - Pollakiuria [Unknown]
  - Fall [Recovered/Resolved]
  - Skin laceration [Recovered/Resolved]
  - Head injury [Recovered/Resolved]
  - Drug interaction [Unknown]
  - Tremor [Recovered/Resolved]
  - Thought blocking [Recovered/Resolved]
  - Pain in extremity [Recovered/Resolved]
  - Blood pressure fluctuation [Unknown]
  - Time perception altered [Unknown]
  - Product dose omission in error [Unknown]
  - Tension [Unknown]
  - Stress [Unknown]
  - Physical deconditioning [Unknown]
  - Eating disorder [Unknown]
  - Gait disturbance [Unknown]
  - Psychiatric symptom [Unknown]
  - Memory impairment [Unknown]
  - Phobia [Unknown]
  - Abulia [Unknown]
  - Somnolence [Unknown]
  - Feeling abnormal [Unknown]
  - Fatigue [Unknown]
  - Visual impairment [Unknown]
  - Sensory disturbance [Unknown]
  - Hypoglycaemia [Unknown]
  - Muscular weakness [Unknown]
  - Dysstasia [Unknown]
  - Vision blurred [Unknown]
  - Weight increased [Unknown]
  - Stupor [Unknown]
  - Behaviour disorder [Unknown]
  - Incontinence [Unknown]
  - Listless [Recovered/Resolved]
  - Hyperphagia [Unknown]
  - Osteoarthritis [Unknown]
  - Arthralgia [Unknown]
  - Insomnia [Unknown]
  - Akathisia [Unknown]
  - Vasodilatation [Unknown]
  - Dysphonia [Unknown]
  - Sleep apnoea syndrome [Unknown]
  - Snoring [Unknown]
  - Respiration abnormal [Unknown]
  - Coronavirus infection [Unknown]
  - Pyrexia [Unknown]
  - Malaise [Unknown]

NARRATIVE: CASE EVENT DATE: 20160201
